FAERS Safety Report 21034191 (Version 7)
Quarter: 2022Q3

REPORT INFORMATION
  Report Type: Spontaneous
  Country: US (occurrence: US)
  Receive Date: 20220701
  Receipt Date: 20220930
  Transmission Date: 20221026
  Serious: No
  Sender: FDA-Public Use
  Company Number: US-PFIZER INC-PV202200011684

PATIENT
  Age: 46 Year
  Sex: Female

DRUGS (1)
  1. IBRANCE [Suspect]
     Active Substance: PALBOCICLIB
     Dosage: 125 MG

REACTIONS (12)
  - Product dose omission in error [Unknown]
  - Dry mouth [Not Recovered/Not Resolved]
  - Alopecia [Unknown]
  - Gingival bleeding [Recovered/Resolved]
  - Ear pain [Unknown]
  - Trichorrhexis [Not Recovered/Not Resolved]
  - Night sweats [Not Recovered/Not Resolved]
  - Hot flush [Not Recovered/Not Resolved]
  - Nausea [Unknown]
  - White blood cell count decreased [Unknown]
  - Abdominal pain upper [Unknown]
  - Madarosis [Unknown]

NARRATIVE: CASE EVENT DATE: 20220722
